FAERS Safety Report 19203292 (Version 2)
Quarter: 2021Q2

REPORT INFORMATION
  Report Type: Report from Study
  Country: CA (occurrence: CA)
  Receive Date: 20210430
  Receipt Date: 20210513
  Transmission Date: 20210717
  Serious: Yes (Hospitalization)
  Sender: FDA-Public Use
  Company Number: CA-OTSUKA-2021_014241

PATIENT
  Sex: Male

DRUGS (1)
  1. ASTX727 [Suspect]
     Active Substance: CEDAZURIDINE\DECITABINE
     Indication: CHRONIC MYELOMONOCYTIC LEUKAEMIA
     Dosage: 135 MG  (35 MG OF DECITABINE AND 100 MG OF CEDAZURIDINE)
     Route: 048
     Dates: start: 20210105

REACTIONS (2)
  - Blood count abnormal [Unknown]
  - Therapy cessation [Unknown]
